FAERS Safety Report 12596648 (Version 1)
Quarter: 2016Q3

REPORT INFORMATION
  Report Type: Report from Study
  Country: US (occurrence: US)
  Receive Date: 20160727
  Receipt Date: 20160727
  Transmission Date: 20161109
  Serious: No
  Sender: FDA-Public Use
  Company Number: US-009507513-1607USA010501

PATIENT
  Sex: Female

DRUGS (1)
  1. ISENTRESS [Suspect]
     Active Substance: RALTEGRAVIR POTASSIUM
     Indication: HIV INFECTION
     Dosage: 400MG/TWICE PER DAY
     Route: 048

REACTIONS (4)
  - Dizziness [Unknown]
  - Dysstasia [Unknown]
  - Nausea [Unknown]
  - Drug dose omission [Unknown]
